FAERS Safety Report 5386158-9 (Version None)
Quarter: 2007Q3

REPORT INFORMATION
  Report Type: 
  Country: None (occurrence: None)
  Receive Date: 20070711
  Receipt Date: 20070711
  Transmission Date: 20080115
  Serious: Yes (Other)
  Sender: FDA-Public Use
  Company Number: None

PATIENT
  Age: 55 Year
  Sex: Female
  Weight: 94.3482 kg

DRUGS (4)
  1. ZOLOFT [Suspect]
     Indication: MENOPAUSAL SYMPTOMS
     Dosage: 100MG PO QD
     Route: 048
     Dates: start: 20070501
  2. ZOLOFT [Suspect]
     Indication: MENOPAUSAL SYMPTOMS
     Dosage: 100MG PO QD
     Route: 048
     Dates: start: 20070601
  3. ADVAIR DISKUS 100/50 [Concomitant]
  4. DETROL [Concomitant]

REACTIONS (4)
  - AGITATION [None]
  - DEPRESSION [None]
  - FEELING ABNORMAL [None]
  - LIBIDO DECREASED [None]
